FAERS Safety Report 7229902-8 (Version None)
Quarter: 2011Q1

REPORT INFORMATION
  Report Type: 
  Country: None (occurrence: None)
  Receive Date: 20110117
  Receipt Date: 20110106
  Transmission Date: 20110831
  Serious: Yes (Other)
  Sender: FDA-Public Use
  Company Number: US-JNJCH-2011000989

PATIENT
  Sex: Female
  Weight: 127 kg

DRUGS (3)
  1. NEOSPORIN [Suspect]
     Indication: LOCAL SWELLING
     Dosage: TEXT:^LARGE AMOUNTS LIBERALLY OVER NECK^
     Route: 061
     Dates: start: 20110104, end: 20110104
  2. BENADRYL [Suspect]
     Indication: SWOLLEN TONGUE
     Route: 048
  3. PRILOSEC [Concomitant]
     Indication: GASTROOESOPHAGEAL REFLUX DISEASE
     Dosage: TEXT:40 MG /1 DAILY
     Route: 065

REACTIONS (9)
  - HYPOAESTHESIA ORAL [None]
  - DRUG INEFFECTIVE FOR UNAPPROVED INDICATION [None]
  - TONGUE PARALYSIS [None]
  - GLOSSODYNIA [None]
  - DYSGEUSIA [None]
  - SPEECH DISORDER [None]
  - THERAPEUTIC RESPONSE UNEXPECTED [None]
  - INCORRECT DOSE ADMINISTERED [None]
  - OFF LABEL USE [None]
